FAERS Safety Report 4595378-2 (Version None)
Quarter: 2005Q1

REPORT INFORMATION
  Report Type: 
  Country: None (occurrence: None)
  Receive Date: 20050224
  Receipt Date: 20050211
  Transmission Date: 20050727
  Serious: Yes (Hospitalization)
  Sender: FDA-Public Use
  Company Number: 2005-BP-02224BP

PATIENT
  Age: 64 Year
  Sex: Female

DRUGS (4)
  1. MIRAPEX [Suspect]
     Indication: PARKINSON'S DISEASE
     Dosage: 3 MG (1 MG, 3 IN 1 D), PO
     Route: 048
     Dates: start: 20041001, end: 20050208
  2. ZOCOR [Concomitant]
  3. SYNTHROID [Concomitant]
  4. LUMIGAN [Concomitant]

REACTIONS (6)
  - ANXIETY [None]
  - BLOOD PRESSURE INCREASED [None]
  - CHEST DISCOMFORT [None]
  - HEART RATE INCREASED [None]
  - HYPERHIDROSIS [None]
  - TREMOR [None]
